FAERS Safety Report 4989661-6 (Version None)
Quarter: 2006Q2

REPORT INFORMATION
  Report Type: 
  Country: None (occurrence: None)
  Receive Date: 20060426
  Receipt Date: 20060413
  Transmission Date: 20061013
  Serious: Yes (Hospitalization)
  Sender: FDA-Public Use
  Company Number: US200604002244

PATIENT
  Age: 47 Year
  Sex: Female

DRUGS (3)
  1. CYMBALTA [Suspect]
     Indication: DEPRESSION
     Dosage: 90 MG DAILY (1/D)
  2. RETIN A (TRETINOIN) [Concomitant]
  3. CALCIUM GLUCONATE [Concomitant]

REACTIONS (1)
  - MESENTERIC OCCLUSION [None]
